FAERS Safety Report 4373803-X (Version None)
Quarter: 2004Q1

REPORT INFORMATION
  Report Type: 
  Country: None (occurrence: None)
  Receive Date: 20040305
  Receipt Date: 20031119
  Transmission Date: 20041129
  Serious: Yes (Other)
  Sender: FDA-Public Use
  Company Number: 2003UW15320

PATIENT
  Sex: Female

DRUGS (4)
  1. CRESTOR [Suspect]
     Dates: start: 20030901
  2. LEXAPRO [Concomitant]
  3. METHOTREXATE [Concomitant]
  4. SYNTHROID [Concomitant]

REACTIONS (1)
  - VAGINAL MYCOSIS [None]
